FAERS Safety Report 4283392-6 (Version None)
Quarter: 2004Q1

REPORT INFORMATION
  Report Type: 
  Country: None (occurrence: None)
  Receive Date: 20040115
  Receipt Date: 20030904
  Transmission Date: 20041129
  Serious: Yes (Hospitalization)
  Sender: FDA-Public Use
  Company Number: US-JNJFOC-20030901079

PATIENT
  Age: 56 Year
  Sex: Female

DRUGS (4)
  1. DOXIL [Suspect]
     Indication: OVARIAN CANCER
  2. VICODIN (PATCH) [Concomitant]
  3. ANTIANXIETY DRUG (OTHER HYPNOTICS AND SEDATIVES) [Concomitant]
  4. ANTIEMETIC (ANTIEMETICS AND ANTINAUSEANTS) [Concomitant]

REACTIONS (9)
  - BLOOD CALCIUM INCREASED [None]
  - BLOOD TEST ABNORMAL [None]
  - CONFUSIONAL STATE [None]
  - DEHYDRATION [None]
  - DIARRHOEA [None]
  - DYSPNOEA [None]
  - INFECTION [None]
  - NAUSEA [None]
  - VOMITING [None]
